FAERS Safety Report 9281199 (Version 1)
Quarter: 2013Q2

REPORT INFORMATION
  Report Type: Spontaneous
  Country: DE (occurrence: DE)
  Receive Date: 20130509
  Receipt Date: 20130509
  Transmission Date: 20140414
  Serious: Yes (Other)
  Sender: FDA-Public Use
  Company Number: DE-ASTRAZENECA-2013SE31101

PATIENT
  Age: 63 Year
  Sex: Male

DRUGS (3)
  1. CASODEX [Suspect]
     Route: 048
     Dates: start: 201109
  2. ANTIDEPRESSANT [Concomitant]
     Indication: DEPRESSION
  3. DHEA [Concomitant]
     Dosage: 25 MG DAILY, 60 CAPSULE IN TOTAL
     Route: 048
     Dates: start: 201211

REACTIONS (8)
  - Dehydroepiandrosterone increased [Unknown]
  - Prostatic specific antigen increased [Unknown]
  - Progesterone increased [Unknown]
  - Urinary tract infection [Unknown]
  - Blood testosterone increased [Unknown]
  - Oestradiol increased [Unknown]
  - Depression [Unknown]
  - Off label use [Unknown]
